FAERS Safety Report 8325539-8 (Version None)
Quarter: 2012Q2

REPORT INFORMATION
  Report Type: 
  Country: None (occurrence: None)
  Receive Date: 20120501
  Receipt Date: 20120418
  Transmission Date: 20120825
  Serious: Yes (Life-Threatening, Other)
  Sender: FDA-Public Use
  Company Number: CN-JNJFOC-20110400354

PATIENT
  Sex: Male

DRUGS (3)
  1. PHENERGAN [Concomitant]
     Indication: PREMEDICATION
     Route: 030
     Dates: start: 20110314, end: 20110328
  2. REMICADE [Suspect]
     Route: 042
     Dates: start: 20110328
  3. REMICADE [Suspect]
     Indication: PSORIATIC ARTHROPATHY
     Dosage: INDUCTION TREATMENT
     Route: 042
     Dates: start: 20110314

REACTIONS (4)
  - DYSPNOEA [None]
  - CONFUSIONAL STATE [None]
  - CHEST DISCOMFORT [None]
  - INFUSION RELATED REACTION [None]
